FAERS Safety Report 17213159 (Version 1)
Quarter: 2020Q1

REPORT INFORMATION
  Report Type: Spontaneous
  Country: US (occurrence: US)
  Receive Date: 20191227
  Receipt Date: 20191227
  Transmission Date: 20200409
  Serious: Yes (Other)
  Sender: FDA-Public Use
  Company Number: None

PATIENT
  Age: 65 Year
  Sex: Male
  Weight: 140.4 kg

DRUGS (18)
  1. NOVALOG FLEXPEN [Concomitant]
  2. OLMESARTAN/HCTZ TABS [Concomitant]
  3. FISH OIL [Concomitant]
     Active Substance: FISH OIL
  4. MEGA VITAMIN [Concomitant]
  5. VERAPAMIL [Concomitant]
     Active Substance: VERAPAMIL HYDROCHLORIDE
  6. VITAMIN E [Concomitant]
     Active Substance: .ALPHA.-TOCOPHEROL
  7. DULOXETENE [Concomitant]
  8. METFORMIN [Concomitant]
     Active Substance: METFORMIN HYDROCHLORIDE
  9. VITAMIN D3 [Concomitant]
     Active Substance: CHOLECALCIFEROL
  10. JARDIANCE [Suspect]
     Active Substance: EMPAGLIFLOZIN
     Indication: TYPE 2 DIABETES MELLITUS
     Dosage: ?          QUANTITY:1 TABLET(S);?
     Route: 048
     Dates: start: 20190107, end: 20191227
  11. VITAMIN C [Concomitant]
     Active Substance: ASCORBIC ACID
  12. ULTRA COQ [Concomitant]
  13. LEVEMIR [Concomitant]
     Active Substance: INSULIN DETEMIR
  14. METOPROLOL. [Concomitant]
     Active Substance: METOPROLOL
  15. OMEPRAZOLE. [Concomitant]
     Active Substance: OMEPRAZOLE
  16. POTASSIUM CHLORIDE. [Concomitant]
     Active Substance: POTASSIUM CHLORIDE
  17. PRADAXA [Concomitant]
     Active Substance: DABIGATRAN ETEXILATE MESYLATE
  18. ASPIRIN 81MG [Concomitant]
     Active Substance: ASPIRIN

REACTIONS (2)
  - Drug ineffective [None]
  - Urinary tract infection [None]

NARRATIVE: CASE EVENT DATE: 20191211
